FAERS Safety Report 15456308 (Version 2)
Quarter: 2018Q4

REPORT INFORMATION
  Report Type: Spontaneous
  Country: SI (occurrence: SI)
  Receive Date: 20181002
  Receipt Date: 20181011
  Transmission Date: 20190204
  Serious: Yes (Hospitalization, Other)
  Sender: FDA-Public Use
  Company Number: PHHY2018SI114440

PATIENT
  Sex: Male
  Weight: 66 kg

DRUGS (2)
  1. MOXIFLOXACIN. [Suspect]
     Active Substance: MOXIFLOXACIN
     Indication: PNEUMONIA
     Dosage: UNK
     Route: 065
  2. AZITHROMYCIN ANHYDROUS. [Suspect]
     Active Substance: AZITHROMYCIN ANHYDROUS
     Indication: PNEUMONIA
     Dosage: UNK
     Route: 065

REACTIONS (34)
  - Dermatitis exfoliative generalised [Unknown]
  - Night sweats [Unknown]
  - Skin exfoliation [Unknown]
  - Arthralgia [Recovered/Resolved]
  - Asthenia [Unknown]
  - Lymphoma [Unknown]
  - Body temperature decreased [Unknown]
  - Fatigue [Unknown]
  - Body temperature increased [Unknown]
  - Mobility decreased [Unknown]
  - Haemoglobin decreased [Unknown]
  - Serum ferritin increased [Unknown]
  - Hypersensitivity [Unknown]
  - Nausea [Unknown]
  - Psoriatic arthropathy [Unknown]
  - Myelodysplastic syndrome [Unknown]
  - Natural killer cell count decreased [Unknown]
  - Abdominal pain upper [Unknown]
  - Haemophagocytic lymphohistiocytosis [Unknown]
  - Weight decreased [Unknown]
  - Lymphadenopathy [Unknown]
  - Cough [Unknown]
  - Flatulence [Unknown]
  - Vomiting [Unknown]
  - Palpitations [Unknown]
  - Blood pressure decreased [Unknown]
  - Hypermetabolism [Unknown]
  - Fibrosis [Unknown]
  - Decreased appetite [Unknown]
  - Dyspnoea [Unknown]
  - Swelling [Unknown]
  - Rales [Unknown]
  - Oedema peripheral [Unknown]
  - Pyrexia [Unknown]

NARRATIVE: CASE EVENT DATE: 201802
